FAERS Safety Report 16774585 (Version 2)
Quarter: 2019Q4

REPORT INFORMATION
  Report Type: Spontaneous
  Country: FR (occurrence: FR)
  Receive Date: 20190905
  Receipt Date: 20191031
  Transmission Date: 20200122
  Serious: Yes (Hospitalization, Other)
  Sender: FDA-Public Use
  Company Number: FR-AUROBINDO-AUR-APL-2019-057486

PATIENT
  Age: 31 Year
  Sex: Female
  Weight: 93.4 kg

DRUGS (14)
  1. DOXORUBICIN [Suspect]
     Active Substance: DOXORUBICIN
     Indication: B-CELL LYMPHOMA
     Dosage: 1000 MILLIGRAM, 2 UNITS IN A WEEK
     Route: 042
     Dates: start: 20190605, end: 20190715
  2. RITUXIMAB. [Suspect]
     Active Substance: RITUXIMAB
     Indication: B-CELL LYMPHOMA
     Dosage: 700 MILLIGRAM, 2 UNITS IN A WEEK
     Route: 042
     Dates: start: 20190605, end: 20190729
  3. VINCRISTINE SULFATE. [Suspect]
     Active Substance: VINCRISTINE SULFATE
     Indication: B-CELL LYMPHOMA
     Dosage: 2 MILLIGRAM, 2 WEEKS
     Route: 042
     Dates: start: 20190605, end: 20190715
  4. BACTRIM [Concomitant]
     Active Substance: SULFAMETHOXAZOLE\TRIMETHOPRIM
     Indication: OPPORTUNISTIC INFECTION PROPHYLAXIS
     Dosage: 3 DOSAGE FORM, EVERY WEEK
     Route: 048
     Dates: start: 20190605, end: 20190729
  5. DOXORUBICIN [Suspect]
     Active Substance: DOXORUBICIN
     Dosage: 1000 MILLIGRAM, 2 UNITS IN A WEEK
     Route: 042
     Dates: start: 20190606, end: 201907
  6. FOLIC ACID. [Suspect]
     Active Substance: FOLIC ACID
     Indication: VITAMIN SUPPLEMENTATION
     Dosage: 25 MILLIGRAM, EVERY WEEK
     Route: 048
     Dates: start: 20190605, end: 201907
  7. VINCRISTINE SULFATE. [Suspect]
     Active Substance: VINCRISTINE SULFATE
     Dosage: 2 MILLIGRAM, 2 UNITS IN A WEEK
     Route: 042
     Dates: start: 20190606, end: 201907
  8. FILGRASTIM [Concomitant]
     Active Substance: FILGRASTIM
     Indication: COLONY STIMULATING FACTOR THERAPY
     Dosage: 240 MEGA-INTERNATIONAL UNIT, 2 UNITS IN A WEEK
     Route: 058
     Dates: start: 20190610, end: 201907
  9. OMEPRAZOLE. [Concomitant]
     Active Substance: OMEPRAZOLE
     Indication: PROPHYLAXIS AGAINST GASTROINTESTINAL ULCER
     Dosage: 20 MILLIGRAM, ONCE A DAY
     Route: 048
     Dates: start: 20190715, end: 20190729
  10. CYCLOPHOSPHAMIDE. [Suspect]
     Active Substance: CYCLOPHOSPHAMIDE
     Indication: B-CELL LYMPHOMA
     Dosage: 1500 MILLIGRAM, 2 UNITS IN A WEEK
     Route: 042
     Dates: start: 20190605, end: 20190715
  11. VALACICLOVIR [Concomitant]
     Active Substance: VALACYCLOVIR HYDROCHLORIDE
     Indication: ANTIVIRAL PROPHYLAXIS
     Dosage: 1000 MILLIGRAM, ONCE A DAY
     Route: 048
     Dates: start: 20190605, end: 20190729
  12. CALCIUM FOLINATE [Concomitant]
     Active Substance: LEUCOVORIN CALCIUM
     Indication: VITAMIN SUPPLEMENTATION
     Dosage: 25 MILLIGRAM, EVERY WEEK
     Route: 048
     Dates: start: 20190605, end: 201907
  13. PREDNISONE. [Suspect]
     Active Substance: PREDNISONE
     Indication: B-CELL LYMPHOMA
     Dosage: 400 MILLIGRAM, 2 UNITS IN A WEEK
     Route: 048
     Dates: start: 20190605, end: 201907
  14. MESNA. [Concomitant]
     Active Substance: MESNA
     Indication: PROPHYLAXIS
     Dosage: 1500 MILLIGRAM, 2 UNITS IN A WEEK
     Route: 042
     Dates: start: 20190606, end: 201907

REACTIONS (2)
  - Hepatocellular injury [Not Recovered/Not Resolved]
  - Hepatitis E [Not Recovered/Not Resolved]

NARRATIVE: CASE EVENT DATE: 20190727
